FAERS Safety Report 4541293-X (Version None)
Quarter: 2004Q4

REPORT INFORMATION
  Report Type: 
  Country: None (occurrence: None)
  Receive Date: 20041228
  Receipt Date: 20041208
  Transmission Date: 20050328
  Serious: Yes (Other)
  Sender: FDA-Public Use
  Company Number: DSA_25489_2004

PATIENT
  Age: 74 Year
  Sex: Male
  Weight: 78.0187 kg

DRUGS (5)
  1. CARDIZEM CD [Suspect]
     Indication: BLOOD PRESSURE
     Dosage: 180 MG Q DAY PO
     Route: 048
     Dates: start: 19870101
  2. KLOTRIX [Concomitant]
  3. LIPITOR [Concomitant]
  4. ASPIRIN [Concomitant]
  5. COZAAR [Concomitant]

REACTIONS (3)
  - BLOOD PRESSURE INCREASED [None]
  - FATIGUE [None]
  - PALPITATIONS [None]
